FAERS Safety Report 8435544-9 (Version None)
Quarter: 2012Q2

REPORT INFORMATION
  Report Type: 
  Country: None (occurrence: None)
  Receive Date: 20120614
  Receipt Date: 20120607
  Transmission Date: 20120825
  Serious: Yes (Other)
  Sender: FDA-Public Use
  Company Number: US-PFIZER INC-2012138156

PATIENT

DRUGS (1)
  1. CHANTIX [Suspect]
     Dosage: UNK

REACTIONS (5)
  - KETOSIS [None]
  - GASTROINTESTINAL SOUNDS ABNORMAL [None]
  - FEAR [None]
  - FEELING ABNORMAL [None]
  - INSOMNIA [None]
